FAERS Safety Report 8382875-7 (Version None)
Quarter: 2012Q2

REPORT INFORMATION
  Report Type: 
  Country: None (occurrence: None)
  Receive Date: 20120524
  Receipt Date: 20120514
  Transmission Date: 20120825
  Serious: Yes (Other)
  Sender: FDA-Public Use
  Company Number: TH-JNJFOC-20110900147

PATIENT
  Sex: Male

DRUGS (6)
  1. PREZISTA [Suspect]
     Indication: HIV INFECTION
     Route: 048
     Dates: start: 20090213
  2. LAMIVUDINE [Concomitant]
     Indication: HIV INFECTION
     Route: 048
     Dates: start: 20090213
  3. RITONAVIR [Suspect]
     Indication: HIV INFECTION
     Route: 048
     Dates: start: 20090213
  4. TENOFOVIR DISOPROXIL FUMARATE [Concomitant]
     Indication: HIV INFECTION
     Route: 048
     Dates: start: 20090213
  5. INTELENCE [Concomitant]
     Indication: HIV INFECTION
     Route: 048
     Dates: start: 20090213
  6. EMTRICITABINE [Concomitant]
     Indication: HIV INFECTION
     Route: 048

REACTIONS (3)
  - RENAL FAILURE [None]
  - RIB FRACTURE [None]
  - OSTEOPOROSIS [None]
